FAERS Safety Report 22100029 (Version 1)
Quarter: 2023Q1

REPORT INFORMATION
  Report Type: Spontaneous
  Country: GB (occurrence: GB)
  Receive Date: 20230315
  Receipt Date: 20230315
  Transmission Date: 20230418
  Serious: Yes (Hospitalization, Other)
  Sender: FDA-Public Use
  Company Number: None

PATIENT
  Sex: Male

DRUGS (13)
  1. UNSPECIFIED INGREDIENT [Suspect]
     Active Substance: UNSPECIFIED INGREDIENT
     Indication: Cataract operation
     Dosage: 1 GTT, QID, LEFT EYE FOR 1 MONTH THEN BD
     Route: 031
     Dates: start: 20230131
  2. PREDNISOLONE [Suspect]
     Active Substance: PREDNISOLONE
     Indication: Myasthenia gravis
     Dosage: UNK
     Route: 048
  3. AMITRIPTYLINE [Concomitant]
     Active Substance: AMITRIPTYLINE
     Route: 048
  4. ASPIRIN [Concomitant]
     Active Substance: ASPIRIN
     Route: 048
  5. ATORVASTATIN [Concomitant]
     Active Substance: ATORVASTATIN
     Route: 048
  6. BISOPROLOL [Concomitant]
     Active Substance: BISOPROLOL
     Dosage: UNK UNK, QD
     Route: 048
     Dates: end: 20230309
  7. CARBOMER [Concomitant]
     Active Substance: CARBOMER
     Dosage: BILATERAL EYESCARBOMER ^980^ 0.2%
     Route: 031
  8. CITALOPRAM [Concomitant]
     Active Substance: CITALOPRAM HYDROBROMIDE
     Route: 048
  9. DORZOLAMIDE [Concomitant]
     Active Substance: DORZOLAMIDE
     Dosage: BILATERAL EYE
     Route: 031
  10. TIMOLOL [Concomitant]
     Active Substance: TIMOLOL
     Dosage: BILATERAL EYE
     Route: 031
  11. LANSOPRAZOLE [Concomitant]
     Active Substance: LANSOPRAZOLE
     Route: 048
  12. LATANOPROST [Concomitant]
     Active Substance: LATANOPROST
     Dosage: BILATERAL EYES AT NIGHT
     Route: 031
  13. TRAMADOL [Concomitant]
     Active Substance: TRAMADOL
     Dosage: 50-100MG QDS PRN
     Route: 048

REACTIONS (1)
  - Psychotic disorder [Recovered/Resolved]

NARRATIVE: CASE EVENT DATE: 20230212
